FAERS Safety Report 7546490-7 (Version None)
Quarter: 2011Q2

REPORT INFORMATION
  Report Type: 
  Country: None (occurrence: None)
  Receive Date: 20110614
  Receipt Date: 20110607
  Transmission Date: 20111010
  Serious: Yes (Other)
  Sender: FDA-Public Use
  Company Number: US-ROXANE LABORATORIES, INC.-2011-RO-00778RO

PATIENT
  Age: 61 Year
  Sex: Female

DRUGS (8)
  1. MYCOPHENOLATE MEFETIL [Suspect]
     Indication: SYSTEMIC LUPUS ERYTHEMATOSUS
     Dosage: 1000 MG
     Dates: start: 20030101
  2. AZATHIOPRINE [Suspect]
     Indication: DERMATITIS BULLOUS
  3. PREDNISONE [Suspect]
     Indication: PEMPHIGOID
  4. PREDNISONE [Suspect]
     Indication: DERMATITIS BULLOUS
  5. MYCOPHENOLATE MEFETIL [Suspect]
     Indication: EPIDERMOLYSIS BULLOSA
     Dosage: 2000 MG
  6. PREDNISONE [Suspect]
     Indication: SYSTEMIC LUPUS ERYTHEMATOSUS
  7. AZATHIOPRINE [Suspect]
     Indication: SYSTEMIC LUPUS ERYTHEMATOSUS
  8. MYCOPHENOLATE MEFETIL [Suspect]
     Indication: DERMATITIS BULLOUS

REACTIONS (3)
  - LEUKOPENIA [None]
  - DRUG INEFFECTIVE [None]
  - PYREXIA [None]
